FAERS Safety Report 5827321-X (Version None)
Quarter: 2008Q3

REPORT INFORMATION
  Report Type: 
  Country: None (occurrence: None)
  Receive Date: 20080730
  Receipt Date: 20080722
  Transmission Date: 20090109
  Serious: Yes (Other)
  Sender: FDA-Public Use
  Company Number: US-SANOFI-SYNTHELABO-A03200801775

PATIENT
  Sex: Male
  Weight: 138.8 kg

DRUGS (23)
  1. AVAPRO [Concomitant]
     Indication: CORONARY ARTERY DISEASE
     Route: 048
  2. ZOCOR [Concomitant]
     Indication: CORONARY ARTERY DISEASE
     Route: 048
  3. ZOCOR [Concomitant]
     Indication: HYPERLIPIDAEMIA
     Route: 048
  4. TOPROL-XL [Concomitant]
     Indication: DRUG USE FOR UNKNOWN INDICATION
     Dosage: UNK
     Route: 065
  5. PLAVIX [Suspect]
     Indication: CARDIAC OPERATION
     Route: 048
     Dates: start: 19950101
  6. PLAVIX [Suspect]
     Indication: MYOCARDIAL INFARCTION
     Route: 048
     Dates: start: 19950101
  7. PLAVIX [Suspect]
     Indication: CORONARY ARTERY DISEASE
     Route: 048
     Dates: start: 19950101
  8. PLAVIX [Suspect]
     Route: 048
     Dates: start: 20041013, end: 20070115
  9. PLAVIX [Suspect]
     Route: 048
     Dates: start: 20041013, end: 20070115
  10. PLAVIX [Suspect]
     Route: 048
     Dates: start: 20041013, end: 20070115
  11. PLAVIX [Suspect]
     Route: 048
     Dates: start: 20070101, end: 20080204
  12. PLAVIX [Suspect]
     Route: 048
     Dates: start: 20070101, end: 20080204
  13. PLAVIX [Suspect]
     Route: 048
     Dates: start: 20070101, end: 20080204
  14. PREVACID [Concomitant]
     Indication: GASTROOESOPHAGEAL REFLUX DISEASE
     Route: 048
  15. VITAMIN B-12 [Concomitant]
     Indication: DRUG USE FOR UNKNOWN INDICATION
     Dosage: UNK
     Route: 065
  16. FISH OIL [Concomitant]
     Indication: CORONARY ARTERY DISEASE
     Route: 048
  17. FISH OIL [Concomitant]
     Indication: HYPERLIPIDAEMIA
     Route: 048
  18. MULTI-VITAMIN [Concomitant]
     Indication: DRUG USE FOR UNKNOWN INDICATION
     Route: 065
  19. ATENOLOL [Concomitant]
     Indication: CORONARY ARTERY DISEASE
     Route: 048
  20. NIASPAN [Concomitant]
     Indication: CORONARY ARTERY DISEASE
     Route: 065
  21. NIASPAN [Concomitant]
     Indication: HYPERLIPIDAEMIA
     Route: 065
  22. ASPIRIN [Suspect]
     Indication: CORONARY ARTERY DISEASE
     Route: 048
  23. LASIX [Concomitant]
     Indication: DRUG USE FOR UNKNOWN INDICATION
     Dosage: UNK
     Route: 065

REACTIONS (3)
  - DEAFNESS UNILATERAL [None]
  - DEEP VEIN THROMBOSIS [None]
  - ULCER [None]
